FAERS Safety Report 23029960 (Version 1)
Quarter: 2023Q4

REPORT INFORMATION
  Report Type: Spontaneous
  Country: IT (occurrence: IT)
  Receive Date: 20231005
  Receipt Date: 20231005
  Transmission Date: 20240110
  Serious: Yes (Hospitalization)
  Sender: FDA-Public Use
  Company Number: None

PATIENT
  Age: 32 Year
  Sex: Female

DRUGS (4)
  1. CITALOPRAM [Suspect]
     Active Substance: CITALOPRAM HYDROBROMIDE
     Indication: Personality disorder
     Dosage: NOT KNOWN (NON NOTO)
     Route: 048
     Dates: start: 20230325
  2. OLANZAPINE [Suspect]
     Active Substance: OLANZAPINE
     Indication: Personality disorder
     Dosage: 6 TABLETS 10MG (6 CP 10MG)
     Route: 048
  3. PREGABALIN [Suspect]
     Active Substance: PREGABALIN
     Indication: Personality disorder
     Dosage: NOT KNOWN (NON NOTO)
     Route: 048
     Dates: start: 20230325
  4. DELORAZEPAM [Suspect]
     Active Substance: DELORAZEPAM
     Indication: Personality disorder
     Dosage: 1 BOTTLE (1 FLACONE)
     Route: 048
     Dates: start: 20230325

REACTIONS (3)
  - Drug abuse [Unknown]
  - Sopor [Unknown]
  - Product use in unapproved indication [Unknown]

NARRATIVE: CASE EVENT DATE: 20230325
